FAERS Safety Report 8013556-7 (Version None)
Quarter: 2011Q4

REPORT INFORMATION
  Report Type: 
  Country: None (occurrence: None)
  Receive Date: 20111229
  Receipt Date: 20111223
  Transmission Date: 20120403
  Serious: Yes (Death, Hospitalization)
  Sender: FDA-Public Use
  Company Number: PL-CELGENEUS-129-CCAZA-11101126

PATIENT
  Sex: Female
  Weight: 45 kg

DRUGS (2)
  1. AZACITIDINE [Suspect]
     Dosage: 75 MILLIGRAM/SQ. METER
     Route: 058
     Dates: start: 20111019, end: 20111025
  2. AZACITIDINE [Suspect]
     Dosage: 75 MILLIGRAM/SQ. METER
     Route: 058
     Dates: start: 20110921, end: 20110928

REACTIONS (17)
  - ACUTE MYELOID LEUKAEMIA [None]
  - NEOPLASM PROGRESSION [None]
  - ACTIVATED PARTIAL THROMBOPLASTIN TIME PROLONGED [None]
  - PNEUMONIA [None]
  - CACHEXIA [None]
  - PROTEIN TOTAL DECREASED [None]
  - BLOOD BILIRUBIN INCREASED [None]
  - LOSS OF CONSCIOUSNESS [None]
  - BLOOD ALBUMIN DECREASED [None]
  - CANDIDA TEST POSITIVE [None]
  - ASPARTATE AMINOTRANSFERASE INCREASED [None]
  - GENERAL PHYSICAL HEALTH DETERIORATION [None]
  - HAEMORRHAGIC DIATHESIS [None]
  - CARDIO-RESPIRATORY ARREST [None]
  - DEHYDRATION [None]
  - ALANINE AMINOTRANSFERASE INCREASED [None]
  - RENAL FAILURE [None]
